FAERS Safety Report 8879777 (Version 1)
Quarter: 2012Q4

REPORT INFORMATION
  Report Type: 
  Country: US (occurrence: US)
  Receive Date: 20121031
  Receipt Date: 20121031
  Transmission Date: 20130627
  Serious: Yes (Hospitalization)
  Sender: FDA-Public Use
  Company Number: US-ABBOTT-12P-163-1002140-00

PATIENT
  Age: 58 Year
  Sex: Female

DRUGS (7)
  1. CYCLOSPORINE [Suspect]
     Indication: PYODERMA GANGRENOSUM
     Route: 048
  2. CYCLOSPORINE [Suspect]
     Route: 048
  3. CYCLOSPORINE [Suspect]
  4. PREDNISONE [Suspect]
     Indication: PYODERMA GANGRENOSUM
     Route: 048
  5. PREDNISONE [Suspect]
     Route: 048
  6. PREDNISONE [Suspect]
  7. METHYLPREDNISOLONE [Concomitant]
     Indication: PRODUCT USED FOR UNKNOWN INDICATION
     Route: 042

REACTIONS (2)
  - Pyoderma gangrenosum [Recovered/Resolved]
  - Treatment noncompliance [Recovered/Resolved]
